FAERS Safety Report 4606898-6 (Version None)
Quarter: 2005Q1

REPORT INFORMATION
  Report Type: 
  Country: None (occurrence: None)
  Receive Date: 20050310
  Receipt Date: 20050302
  Transmission Date: 20050727
  Serious: Yes (Other)
  Sender: FDA-Public Use
  Company Number: 2005-03-0219

PATIENT
  Age: 60 Year
  Sex: Female

DRUGS (1)
  1. INTRON A [Suspect]
     Indication: MALIGNANT MELANOMA
     Dosage: 5 MIU TIW SUBCUTANEOUS
     Route: 058
     Dates: start: 20040201

REACTIONS (1)
  - INJECTION SITE NECROSIS [None]
